FAERS Safety Report 5187875-6 (Version None)
Quarter: 2006Q4

REPORT INFORMATION
  Report Type: 
  Country: None (occurrence: None)
  Receive Date: 20061221
  Receipt Date: 20061107
  Transmission Date: 20070319
  Serious: No
  Sender: FDA-Public Use
  Company Number: 200618573US

PATIENT
  Sex: Female

DRUGS (1)
  1. AVANDARYL [Suspect]
     Route: 048

REACTIONS (1)
  - SWELLING [None]
